FAERS Safety Report 5519693-0 (Version None)
Quarter: 2007Q4

REPORT INFORMATION
  Report Type: 
  Country: None (occurrence: None)
  Receive Date: 20071116
  Receipt Date: 20071113
  Transmission Date: 20080405
  Serious: Yes (Other)
  Sender: FDA-Public Use
  Company Number: BE-JNJFOC-20071007965

PATIENT
  Sex: Male
  Weight: 41 kg

DRUGS (4)
  1. TOPAMAX [Suspect]
  2. TOPAMAX [Suspect]
  3. TOPAMAX [Suspect]
     Indication: MIGRAINE
  4. TOPAMAX [Suspect]
     Indication: EPILEPSY

REACTIONS (1)
  - GROWTH RETARDATION [None]
